FAERS Safety Report 5133013-5 (Version None)
Quarter: 2006Q4

REPORT INFORMATION
  Report Type: 
  Country: None (occurrence: None)
  Receive Date: 20061013
  Receipt Date: 20061004
  Transmission Date: 20070319
  Serious: Yes (Other)
  Sender: FDA-Public Use
  Company Number: 105416

PATIENT
  Age: 68 Year
  Sex: Male

DRUGS (2)
  1. DAIVONEX (CALCIPOTRIOL) [Suspect]
     Indication: PSORIASIS
     Dosage: 2 APPLICATION  TO
     Route: 061
     Dates: start: 20040101
  2. DIPROCEL (BETAXETHASONE DIPROPIONATE) [Concomitant]

REACTIONS (1)
  - BLOOD PRESSURE SYSTOLIC INCREASED [None]
